FAERS Safety Report 15456589 (Version 2)
Quarter: 2018Q4

REPORT INFORMATION
  Report Type: Spontaneous
  Country: JP (occurrence: JP)
  Receive Date: 20181002
  Receipt Date: 20181005
  Transmission Date: 20190204
  Serious: Yes (Other)
  Sender: FDA-Public Use
  Company Number: JP-PFIZER INC-2018395887

PATIENT
  Age: 83 Year
  Sex: Female

DRUGS (2)
  1. TOVIAZ [Suspect]
     Active Substance: FESOTERODINE FUMARATE
  2. BETANIS [Suspect]
     Active Substance: MIRABEGRON

REACTIONS (2)
  - Hypotonic urinary bladder [Unknown]
  - Residual urine volume increased [Recovered/Resolved]
